FAERS Safety Report 8266436-6 (Version None)
Quarter: 2012Q2

REPORT INFORMATION
  Report Type: 
  Country: None (occurrence: None)
  Receive Date: 20120406
  Receipt Date: 20120403
  Transmission Date: 20120825
  Serious: Yes (Other)
  Sender: FDA-Public Use
  Company Number: US-MERCK-1204USA00779

PATIENT
  Sex: Female

DRUGS (4)
  1. FOSAMAX [Suspect]
     Route: 048
     Dates: start: 20050101
  2. IBANDRONATE SODIUM [Suspect]
     Route: 065
     Dates: start: 20050101
  3. FOSAMAX [Suspect]
     Route: 048
     Dates: start: 20050101
  4. BONIVA [Suspect]
     Route: 065
     Dates: start: 20050101

REACTIONS (1)
  - FEMUR FRACTURE [None]
